FAERS Safety Report 4822346-5 (Version None)
Quarter: 2005Q4

REPORT INFORMATION
  Report Type: 
  Country: None (occurrence: None)
  Receive Date: 20051104
  Receipt Date: 20051027
  Transmission Date: 20060501
  Serious: Yes (Other)
  Sender: FDA-Public Use
  Company Number: 200514352BCC

PATIENT
  Age: 26 Year
  Sex: Female
  Weight: 74.8435 kg

DRUGS (2)
  1. RID COMPLETE LICE ELIMINATION KIT [Suspect]
     Indication: LICE INFESTATION
     Dosage: TOPICAL
     Route: 061
     Dates: start: 20051026
  2. IPRATROPIUM BROMIDE [Concomitant]

REACTIONS (6)
  - CHEST PAIN [None]
  - FALL [None]
  - HYPERHIDROSIS [None]
  - HYPERVENTILATION [None]
  - MUSCLE SPASMS [None]
  - PARAESTHESIA [None]
